FAERS Safety Report 8017205-3 (Version None)
Quarter: 2012Q1

REPORT INFORMATION
  Report Type: 
  Country: None (occurrence: None)
  Receive Date: 20120102
  Receipt Date: 20110922
  Transmission Date: 20120608
  Serious: Yes (Death, Other)
  Sender: FDA-Public Use
  Company Number: DE-ROCHE-1001446

PATIENT
  Age: 84 Year
  Sex: Female

DRUGS (1)
  1. ALTEPLASE [Suspect]
     Indication: AORTIC THROMBOSIS
     Dosage: 10 MG BOLUS
     Route: 058

REACTIONS (5)
  - HAEMODYNAMIC INSTABILITY [None]
  - RESPIRATORY FAILURE [None]
  - COMA [None]
  - BRADYCARDIA [None]
  - CARDIAC FAILURE ACUTE [None]
